FAERS Safety Report 9298670 (Version 3)
Quarter: 2013Q4

REPORT INFORMATION
  Report Type: Spontaneous
  Country: US (occurrence: None)
  Receive Date: 20121227
  Receipt Date: 20131226
  Transmission Date: 20140711
  Serious: Yes (Hospitalization, Other)
  Sender: FDA-Public Use
  Company Number: PHEH2012US022025

PATIENT
  Age: 73 Year
  Sex: Male
  Weight: 88 kg

DRUGS (7)
  1. AFINITOR [Suspect]
     Indication: METASTATIC RENAL CELL CARCINOMA
     Route: 048
     Dates: start: 20110601
  2. LASIX (FUROSEMIDE) [Suspect]
  3. ALPURINOL (ALLOPURINOL) [Concomitant]
  4. CETRIZINE (CETIRIZINE HYDROCHLORIDE) [Concomitant]
  5. FUROSEMIDE (FUROSEMIDE) [Concomitant]
  6. K-LOR (POTASSIUM CHLORIDE) [Concomitant]
  7. METOLAZONE (METOLAZONE) [Concomitant]

REACTIONS (1)
  - Hyponatraemia [None]
